FAERS Safety Report 4858066-0 (Version None)
Quarter: 2005Q4

REPORT INFORMATION
  Report Type: 
  Country: None (occurrence: None)
  Receive Date: 20051219
  Receipt Date: 20050505
  Transmission Date: 20060501
  Serious: No
  Sender: FDA-Public Use
  Company Number: US-GLAXOSMITHKLINE-A0557387A

PATIENT
  Age: 45 Year
  Sex: Female
  Weight: 68 kg

DRUGS (6)
  1. NICODERM CQ [Suspect]
  2. ATENOLOL [Concomitant]
  3. LISINOPRIL [Concomitant]
  4. ADVAIR DISKUS 250/50 [Concomitant]
  5. COMBIVENT [Concomitant]
  6. LIPITOR [Concomitant]

REACTIONS (1)
  - CHOLELITHIASIS [None]
